FAERS Safety Report 11285727 (Version 2)
Quarter: 2017Q4

REPORT INFORMATION
  Report Type: Report from Study
  Country: None (occurrence: DE)
  Receive Date: 20150721
  Receipt Date: 20171215
  Transmission Date: 20180320
  Serious: Yes (Hospitalization, Other)
  Sender: FDA-Public Use
  Company Number: DE-ABBVIE-15K-062-1427042-00

PATIENT
  Age: 41 Year
  Sex: Female
  Weight: 115 kg

DRUGS (14)
  1. SILKIS [Concomitant]
     Active Substance: CALCITRIOL
     Indication: PRODUCT USED FOR UNKNOWN INDICATION
     Dosage: FREQUENCY TEXT:FREQUENTLY
  2. L-THYROX [Concomitant]
     Active Substance: LEVOTHYROXINE SODIUM
     Indication: PRODUCT USED FOR UNKNOWN INDICATION
  3. TRIAMTERENE AND HYDROCHLOROTHIAZIDE [Concomitant]
     Active Substance: HYDROCHLOROTHIAZIDE\TRIAMTERENE
     Indication: PRODUCT USED FOR UNKNOWN INDICATION
     Dates: start: 2011
  4. HUMIRA [Suspect]
     Active Substance: ADALIMUMAB
     Indication: CROHN^S DISEASE
     Route: 058
     Dates: start: 20140730, end: 20151110
  5. HUMIRA [Suspect]
     Active Substance: ADALIMUMAB
     Indication: CROHN^S DISEASE
     Route: 058
     Dates: start: 201703, end: 201707
  6. VITAMIN D [Concomitant]
     Active Substance: CHOLECALCIFEROL
     Indication: PRODUCT USED FOR UNKNOWN INDICATION
     Dosage: FREQUENCY TEXT: AS REQUIRED
  7. ELIDEL [Concomitant]
     Active Substance: PIMECROLIMUS
     Indication: PRODUCT USED FOR UNKNOWN INDICATION
     Dosage: FREQUENCY TEXT: DAILY AS REQUIRED
     Dates: start: 201706
  8. DEKRISTOL [Concomitant]
     Active Substance: CHOLECALCIFEROL
     Indication: PRODUCT USED FOR UNKNOWN INDICATION
     Dates: start: 201711
  9. OMEPRAZOL [Concomitant]
     Active Substance: OMEPRAZOLE
     Indication: PRODUCT USED FOR UNKNOWN INDICATION
     Dates: start: 2011
  10. ADVANTAN 0.1 % [Concomitant]
     Indication: PRODUCT USED FOR UNKNOWN INDICATION
     Dosage: FREQUENCY TEXT: ONCE PER DAY AS REQUIRED
  11. HUMIRA [Suspect]
     Active Substance: ADALIMUMAB
     Route: 058
     Dates: start: 20151223, end: 201610
  12. PARACETAMOL [Concomitant]
     Active Substance: ACETAMINOPHEN
     Indication: PRODUCT USED FOR UNKNOWN INDICATION
     Dosage: FREQUENCY TEXT : AS REQUIRED
  13. EUTHYROX [Concomitant]
     Active Substance: LEVOTHYROXINE SODIUM
     Indication: PRODUCT USED FOR UNKNOWN INDICATION
     Dates: start: 2003
  14. CETAPHIL [Concomitant]
     Active Substance: AVOBENZONE\OCTOCRYLENE\TRICLOSAN
     Indication: PRODUCT USED FOR UNKNOWN INDICATION

REACTIONS (21)
  - Scar [Recovered/Resolved]
  - Postoperative wound infection [Unknown]
  - Phlebitis [Unknown]
  - Postoperative wound complication [Unknown]
  - Post procedural complication [Unknown]
  - Faeces hard [Unknown]
  - Female genital tract fistula [Recovering/Resolving]
  - Bacterial abdominal infection [Not Recovered/Not Resolved]
  - Varicose vein [Unknown]
  - Iron deficiency [Unknown]
  - Intestinal fistula [Recovered/Resolved]
  - Anal abscess [Not Recovered/Not Resolved]
  - Abscess [Recovered/Resolved]
  - Gastrointestinal stoma complication [Unknown]
  - Diarrhoea [Not Recovered/Not Resolved]
  - Stoma site abscess [Unknown]
  - Wound [Recovered/Resolved]
  - Purulence [Not Recovered/Not Resolved]
  - Anal skin tags [Recovered/Resolved]
  - Impaired healing [Recovered/Resolved]
  - Diarrhoea [Recovered/Resolved]

NARRATIVE: CASE EVENT DATE: 2014
